FAERS Safety Report 12063259 (Version 1)
Quarter: 2016Q1

REPORT INFORMATION
  Report Type: Spontaneous
  Country: US (occurrence: US)
  Receive Date: 20160210
  Receipt Date: 20160210
  Transmission Date: 20160526
  Serious: Yes (Other)
  Sender: FDA-Public Use
  Company Number: US-ALLERGAN-1501323US

PATIENT
  Age: 47 Year
  Sex: Male

DRUGS (1)
  1. BOTOX COSMETIC [Suspect]
     Active Substance: ONABOTULINUMTOXINA
     Indication: SKIN WRINKLING
     Dosage: 30 UNITS, SINGLE
     Route: 030
     Dates: start: 20150107, end: 20150107

REACTIONS (4)
  - Seizure [Unknown]
  - Suture insertion [Unknown]
  - Eye colour change [Unknown]
  - Off label use [Unknown]

NARRATIVE: CASE EVENT DATE: 20150115
